FAERS Safety Report 10643252 (Version 1)
Quarter: 2014Q4

REPORT INFORMATION
  Report Type: Spontaneous
  Country: US (occurrence: None)
  Receive Date: 20141209
  Receipt Date: 20141209
  Transmission Date: 20150529
  Serious: Yes (Hospitalization)
  Sender: FDA-Public Use
  Company Number: None

PATIENT
  Age: 91 Year
  Sex: Male
  Weight: 71.8 kg

DRUGS (1)
  1. NAPROXEN. [Suspect]
     Active Substance: NAPROXEN
     Indication: PAIN
     Route: 048
     Dates: start: 20141119, end: 20141119

REACTIONS (8)
  - Melaena [None]
  - Blood culture positive [None]
  - Dizziness [None]
  - Upper gastrointestinal haemorrhage [None]
  - Mallory-Weiss syndrome [None]
  - Anaemia [None]
  - Erosive oesophagitis [None]
  - Duodenal ulcer [None]

NARRATIVE: CASE EVENT DATE: 20141128
